FAERS Safety Report 20862434 (Version 1)
Quarter: 2022Q2

REPORT INFORMATION
  Report Type: Spontaneous
  Country: US (occurrence: US)
  Receive Date: 20220523
  Receipt Date: 20220523
  Transmission Date: 20220721
  Serious: Yes (Hospitalization)
  Sender: FDA-Public Use
  Company Number: US-MIRM-000432

PATIENT
  Age: 3 Year
  Sex: Male

DRUGS (1)
  1. LIVMARLI [Suspect]
     Active Substance: MARALIXIBAT CHLORIDE
     Indication: Pruritus
     Route: 048
     Dates: start: 202110

REACTIONS (5)
  - Blood sodium decreased [Recovered/Resolved]
  - Cholelithiasis [Unknown]
  - Abdominal pain upper [Unknown]
  - Constipation [Unknown]
  - Hypophagia [Unknown]

NARRATIVE: CASE EVENT DATE: 20220503
